FAERS Safety Report 21066043 (Version 1)
Quarter: 2022Q3

REPORT INFORMATION
  Report Type: Spontaneous
  Country: US (occurrence: US)
  Receive Date: 20220711
  Receipt Date: 20220711
  Transmission Date: 20221027
  Serious: Yes (Other)
  Sender: FDA-Public Use
  Company Number: US-PFIZER INC-PV202200018586

PATIENT
  Age: 60 Year
  Sex: Female

DRUGS (1)
  1. XELJANZ XR [Suspect]
     Active Substance: TOFACITINIB CITRATE
     Indication: Rheumatoid arthritis
     Dosage: 11 MG, DAILY
     Dates: start: 202011, end: 202102

REACTIONS (4)
  - Seronegative arthritis [Unknown]
  - Osteoarthritis [Unknown]
  - Musculoskeletal stiffness [Unknown]
  - Therapeutic response unexpected [Unknown]
